FAERS Safety Report 12580887 (Version 3)
Quarter: 2020Q3

REPORT INFORMATION
  Report Type: Report from Study
  Country: GB (occurrence: GB)
  Receive Date: 20160721
  Receipt Date: 20160805
  Transmission Date: 20201104
  Serious: Yes (Hospitalization)
  Sender: FDA-Public Use
  Company Number: GB-PFIZER INC-2016339238

PATIENT
  Age: 71 Year
  Sex: Female
  Weight: 59.7 kg

DRUGS (4)
  1. PALBOCICLIB [Suspect]
     Active Substance: PALBOCICLIB
     Indication: COLORECTAL CANCER METASTATIC
     Dosage: 125 MG, ONCE DAILY
     Route: 048
     Dates: start: 20160202, end: 20160630
  2. ORAMORPH [Concomitant]
     Active Substance: MORPHINE SULFATE
     Indication: COUGH
     Dosage: 2.5 MG, AS NEEDED
     Route: 048
  3. LOPERAMIDE [Concomitant]
     Active Substance: LOPERAMIDE
     Indication: DIARRHOEA
     Dosage: 2 MG, AS NEEDED
     Dates: start: 20160614
  4. TASELISIB. [Suspect]
     Active Substance: TASELISIB
     Indication: COLORECTAL CANCER METASTATIC
     Dosage: 2 MG, ONCE DAILY
     Route: 048
     Dates: start: 20160202, end: 20160630

REACTIONS (1)
  - Diverticulitis [Recovered/Resolved]

NARRATIVE: CASE EVENT DATE: 20160701
